FAERS Safety Report 7579472-X (Version None)
Quarter: 2011Q2

REPORT INFORMATION
  Report Type: 
  Country: None (occurrence: None)
  Receive Date: 20110622
  Receipt Date: 20110613
  Transmission Date: 20111010
  Serious: Yes (Other)
  Sender: FDA-Public Use
  Company Number: ACO_25185_2011

PATIENT
  Age: 48 Year
  Sex: Female

DRUGS (1)
  1. AMPYRA [Suspect]
     Indication: GAIT DISTURBANCE
     Dosage: 10MG, Q 12HRS
     Dates: start: 20100430

REACTIONS (2)
  - CONVULSION [None]
  - ROAD TRAFFIC ACCIDENT [None]
